FAERS Safety Report 5006952-3 (Version None)
Quarter: 2006Q2

REPORT INFORMATION
  Report Type: 
  Country: None (occurrence: None)
  Receive Date: 20060517
  Receipt Date: 20060511
  Transmission Date: 20061013
  Serious: Yes (Other)
  Sender: FDA-Public Use
  Company Number: 200610169BYL

PATIENT
  Age: 43 Year
  Sex: Male

DRUGS (2)
  1. ASPIRIN [Suspect]
     Dosage: ORAL
     Route: 048
     Dates: end: 20040601
  2. UNKNOWN DRUG [Concomitant]

REACTIONS (1)
  - ERYTHEMA MULTIFORME [None]
